FAERS Safety Report 9471021 (Version 1)
Quarter: 2013Q3

REPORT INFORMATION
  Report Type: Spontaneous
  Country: PE (occurrence: None)
  Receive Date: 20130816
  Receipt Date: 20130816
  Transmission Date: 20140515
  Serious: Yes (Hospitalization)
  Sender: FDA-Public Use
  Company Number: DSU-2013-04259

PATIENT
  Age: 71 Year
  Sex: Male

DRUGS (1)
  1. OLMETEC [Suspect]
     Indication: HYPERTENSION
     Route: 048
     Dates: start: 20130729, end: 20130802

REACTIONS (5)
  - Wrong drug administered [None]
  - Feeling abnormal [None]
  - Hypertension [None]
  - Dizziness [None]
  - Headache [None]
